FAERS Safety Report 11531495 (Version 1)
Quarter: 2015Q3

REPORT INFORMATION
  Report Type: Report from Study
  Country: CA (occurrence: CA)
  Receive Date: 20150921
  Receipt Date: 20150921
  Transmission Date: 20151125
  Serious: Yes (Death)
  Sender: FDA-Public Use
  Company Number: PHHY2015CA113124

PATIENT
  Age: 61 Year
  Sex: Male

DRUGS (3)
  1. SANDOSTATIN LAR DEPOT [Suspect]
     Active Substance: OCTREOTIDE ACETATE
     Indication: RECTOSIGMOID CANCER
     Dosage: 10 MG, QMO
     Route: 030
     Dates: start: 20150513, end: 20150805
  2. SANDOSTATIN [Suspect]
     Active Substance: OCTREOTIDE ACETATE
     Indication: RECTOSIGMOID CANCER
     Dosage: 50 UG, TID
     Route: 058
     Dates: start: 20141219, end: 20150105
  3. SANDOSTATIN [Suspect]
     Active Substance: OCTREOTIDE ACETATE
     Dosage: 50 UG, TID/ CONTINUED 14 DAYS POST 1ST DAY OF LAR
     Dates: start: 20150406

REACTIONS (1)
  - Death [Fatal]

NARRATIVE: CASE EVENT DATE: 20150906
